FAERS Safety Report 23128386 (Version 1)
Quarter: 2023Q4

REPORT INFORMATION
  Report Type: Spontaneous
  Country: US (occurrence: US)
  Receive Date: 20231031
  Receipt Date: 20231031
  Transmission Date: 20240110
  Serious: Yes (Hospitalization, Other)
  Sender: FDA-Public Use
  Company Number: US-UniquePharma-US-2023UPLSPO00013

PATIENT
  Age: 59 Year
  Sex: Female
  Weight: 60.78 kg

DRUGS (2)
  1. CIPROFLOXACIN HYDROCHLORIDE [Suspect]
     Active Substance: CIPROFLOXACIN HYDROCHLORIDE
     Indication: Diverticulitis
     Route: 048
     Dates: start: 20201223, end: 202012
  2. CIPROFLOXACIN HYDROCHLORIDE [Suspect]
     Active Substance: CIPROFLOXACIN HYDROCHLORIDE
     Indication: Urinary tract infection

REACTIONS (28)
  - Nephritis [Recovered/Resolved with Sequelae]
  - Ascites [Recovered/Resolved with Sequelae]
  - Eye swelling [Recovered/Resolved with Sequelae]
  - Dry eye [Recovered/Resolved with Sequelae]
  - Meibomian gland dysfunction [Recovered/Resolved with Sequelae]
  - Cranial nerve disorder [Recovered/Resolved with Sequelae]
  - Cognitive disorder [Recovered/Resolved with Sequelae]
  - Learning disorder [Recovered/Resolved with Sequelae]
  - Impaired work ability [Recovered/Resolved with Sequelae]
  - Eye disorder [Recovered/Resolved with Sequelae]
  - Alopecia [Recovered/Resolved with Sequelae]
  - Derealisation [Recovered/Resolved with Sequelae]
  - Facial discomfort [Recovered/Resolved with Sequelae]
  - Jaw disorder [Recovered/Resolved with Sequelae]
  - Ovarian cyst [Recovered/Resolved with Sequelae]
  - Chronic fatigue syndrome [Recovered/Resolved with Sequelae]
  - Malaise [Recovered/Resolved with Sequelae]
  - Psychiatric symptom [Recovered/Resolved with Sequelae]
  - Anxiety [Recovered/Resolved with Sequelae]
  - Burning sensation [Recovered/Resolved with Sequelae]
  - Illness [Recovered/Resolved with Sequelae]
  - Disability [Recovered/Resolved with Sequelae]
  - Suicidal ideation [Recovered/Resolved with Sequelae]
  - Hypoaesthesia [Recovered/Resolved with Sequelae]
  - Dysgeusia [Recovered/Resolved with Sequelae]
  - Gait inability [Not Recovered/Not Resolved]
  - Memory impairment [Recovered/Resolved with Sequelae]
  - Restlessness [Recovered/Resolved with Sequelae]

NARRATIVE: CASE EVENT DATE: 20201223
